FAERS Safety Report 9886198 (Version 4)
Quarter: 2014Q2

REPORT INFORMATION
  Report Type: Spontaneous
  Country: JP (occurrence: JP)
  Receive Date: 20140210
  Receipt Date: 20140625
  Transmission Date: 20141212
  Serious: Yes (Death, Hospitalization, Other)
  Sender: FDA-Public Use
  Company Number: JP-PFIZER INC-2014034908

PATIENT
  Age: 79 Year
  Sex: Male
  Weight: 48 kg

DRUGS (9)
  1. CELECOX [Suspect]
     Indication: PERIARTHRITIS
     Dosage: 200 MG, DAILY
     Route: 048
     Dates: start: 201304, end: 201401
  2. CRESTOR [Suspect]
     Indication: PROPHYLAXIS
     Dosage: 5 MG, DAILY
     Route: 048
     Dates: start: 201208, end: 201401
  3. JANUVIA [Suspect]
     Indication: DIABETES MELLITUS
     Dosage: 50 MG, DAILY
     Route: 048
     Dates: start: 201208, end: 201401
  4. BAYASPIRIN [Concomitant]
  5. RENIVACE [Concomitant]
  6. ARTIST [Concomitant]
  7. ITOROL [Concomitant]
  8. PANALDINE [Concomitant]
     Route: 048
  9. PREDNISOLONE [Concomitant]
     Dosage: UNK
     Route: 048
     Dates: start: 201304

REACTIONS (1)
  - Interstitial lung disease [Fatal]
